FAERS Safety Report 12339953 (Version 2)
Quarter: 2016Q3

REPORT INFORMATION
  Report Type: Spontaneous
  Country: US (occurrence: US)
  Receive Date: 20160506
  Receipt Date: 20160905
  Transmission Date: 20161109
  Serious: Yes (Other)
  Sender: FDA-Public Use
  Company Number: US-UCBSA-2016014630

PATIENT
  Age: 65 Year
  Sex: Female
  Weight: 88.44 kg

DRUGS (7)
  1. VITAMIN D [Concomitant]
     Active Substance: CHOLECALCIFEROL
     Indication: PRODUCT USED FOR UNKNOWN INDICATION
  2. MEPRON [Concomitant]
     Active Substance: ATOVAQUONE
     Indication: PNEUMONIA PNEUMOCOCCAL
     Dosage: 750 MG, ONCE DAILY (QD) (750/5 ML)
     Route: 048
     Dates: start: 201507
  3. BENADRYL [Concomitant]
     Active Substance: DIPHENHYDRAMINE HYDROCHLORIDE
     Indication: RASH
     Dosage: UNK
     Dates: start: 2016, end: 2016
  4. LEVETIRACETAM. [Suspect]
     Active Substance: LEVETIRACETAM
     Indication: SEIZURE
     Dosage: 1500 MG, 2X/DAY (BID)
     Route: 048
     Dates: start: 201603, end: 2016
  5. MEPRON [Concomitant]
     Active Substance: ATOVAQUONE
     Indication: PROPHYLAXIS
  6. VIMPAT [Suspect]
     Active Substance: LACOSAMIDE
     Indication: SEIZURE
     Dosage: 50 MG, 2X/DAY (BID)
     Route: 048
     Dates: start: 20160323, end: 20160719
  7. LEVETIRACETAM. [Suspect]
     Active Substance: LEVETIRACETAM
     Dosage: TAPERED DOSE
     Dates: start: 20160512, end: 2016

REACTIONS (5)
  - Optic nerve disorder [Unknown]
  - Unevaluable event [Unknown]
  - Vision blurred [Recovered/Resolved]
  - Somnolence [Recovered/Resolved]
  - Rash [Recovered/Resolved]

NARRATIVE: CASE EVENT DATE: 2016
